FAERS Safety Report 7419362-6 (Version None)
Quarter: 2011Q2

REPORT INFORMATION
  Report Type: 
  Country: None (occurrence: None)
  Receive Date: 20110415
  Receipt Date: 20110401
  Transmission Date: 20111010
  Serious: Yes (Other)
  Sender: FDA-Public Use
  Company Number: AZ-ASTRAZENECA-2011SE19438

PATIENT
  Sex: Male

DRUGS (2)
  1. GOSERELIN [Suspect]
     Indication: PROSTATE CANCER
     Route: 058
  2. FLUTAMIDE [Suspect]
     Indication: PROSTATE CANCER
     Route: 048

REACTIONS (3)
  - BLOOD ALKALINE PHOSPHATASE INCREASED [None]
  - HYPOCALCAEMIA [None]
  - HYPERCALCAEMIA [None]
